FAERS Safety Report 6290485-0 (Version None)
Quarter: 2009Q3

REPORT INFORMATION
  Report Type: 
  Country: None (occurrence: None)
  Receive Date: 20090730
  Receipt Date: 20090514
  Transmission Date: 20100115
  Serious: No
  Sender: FDA-Public Use
  Company Number: US-BRISTOL-MYERS SQUIBB COMPANY-14613723

PATIENT
  Age: 70 Year
  Sex: Female
  Weight: 92 kg

DRUGS (4)
  1. COUMADIN [Suspect]
     Indication: ATRIAL FIBRILLATION
     Dosage: 1 DF= 7.5MG DAILY 6 DAYS AND 5MG DAILY 1 DAY
     Route: 048
     Dates: start: 20090201
  2. LIPITOR [Suspect]
  3. PRILOSEC [Suspect]
  4. CARDIZEM [Suspect]

REACTIONS (2)
  - HEADACHE [None]
  - SENSORY DISTURBANCE [None]
